FAERS Safety Report 21966117 (Version 1)
Quarter: 2023Q1

REPORT INFORMATION
  Report Type: Spontaneous
  Country: None (occurrence: US)
  Receive Date: 20230208
  Receipt Date: 20230208
  Transmission Date: 20230418
  Serious: No
  Sender: FDA-Public Use
  Company Number: US-Mission Pharmacal Company-2137656

PATIENT
  Age: 65 Year
  Sex: Male
  Weight: 85.636 kg

DRUGS (5)
  1. POTASSIUM CITRATE [Suspect]
     Active Substance: POTASSIUM CITRATE
     Indication: Nephrolithiasis
     Route: 048
     Dates: start: 201811
  2. POTASSIUM CITRATE [Suspect]
     Active Substance: POTASSIUM CITRATE
     Indication: Hypocitraturia
  3. POTASSIUM CITRATE [Suspect]
     Active Substance: POTASSIUM CITRATE
  4. ALLOPURINOL [Concomitant]
     Active Substance: ALLOPURINOL
  5. HYDROCHLOROTHIAZIDE [Concomitant]
     Active Substance: HYDROCHLOROTHIAZIDE

REACTIONS (3)
  - Drug ineffective [Unknown]
  - Drug ineffective [Unknown]
  - Product residue present [Unknown]
